FAERS Safety Report 12179452 (Version 1)
Quarter: 2016Q1

REPORT INFORMATION
  Report Type: Spontaneous
  Country: US (occurrence: None)
  Receive Date: 20160314
  Receipt Date: 20160314
  Transmission Date: 20160526
  Serious: Yes (Hospitalization, Other)
  Sender: FDA-Public Use
  Company Number: None

PATIENT
  Age: 64 Year
  Sex: Female
  Weight: 61.24 kg

DRUGS (8)
  1. PRALUENT [Concomitant]
     Active Substance: ALIROCUMAB
  2. VITAMIN C [Concomitant]
     Active Substance: ASCORBIC ACID
  3. JARDIANCE [Suspect]
     Active Substance: EMPAGLIFLOZIN
     Indication: DIABETES MELLITUS INADEQUATE CONTROL
     Route: 048
     Dates: start: 20160107, end: 20160225
  4. ASPIRIN. [Concomitant]
     Active Substance: ASPIRIN
  5. CALCIUM W/MAGNESIUM [Concomitant]
     Active Substance: CALCIUM\MAGNESIUM
  6. LANTUS [Concomitant]
     Active Substance: INSULIN GLARGINE
  7. FISH OIL [Concomitant]
     Active Substance: FISH OIL
  8. NOVOLOG [Concomitant]
     Active Substance: INSULIN ASPART

REACTIONS (3)
  - Renal impairment [None]
  - Dialysis [None]
  - Anuria [None]

NARRATIVE: CASE EVENT DATE: 20160225
